FAERS Safety Report 10654356 (Version 1)
Quarter: 2014Q4

REPORT INFORMATION
  Report Type: Spontaneous
  Country: US (occurrence: None)
  Receive Date: 20141215
  Receipt Date: 20141215
  Transmission Date: 20150529
  Serious: No
  Sender: FDA-Public Use
  Company Number: None

PATIENT
  Age: 57 Year
  Sex: Female
  Weight: 141.07 kg

DRUGS (2)
  1. INVOKANA [Suspect]
     Active Substance: CANAGLIFLOZIN
     Dosage: 1
     Route: 048
     Dates: start: 20141112, end: 20141212
  2. INVOKANA [Suspect]
     Active Substance: CANAGLIFLOZIN
     Indication: TYPE 2 DIABETES MELLITUS
     Dosage: 1
     Route: 048
     Dates: start: 20141112, end: 20141212

REACTIONS (18)
  - Thirst [None]
  - Nausea [None]
  - Dry skin [None]
  - Hypoaesthesia [None]
  - Coordination abnormal [None]
  - Amnesia [None]
  - Dizziness [None]
  - Hot flush [None]
  - Headache [None]
  - Blood pressure increased [None]
  - Back pain [None]
  - Vaginal discharge [None]
  - Tinnitus [None]
  - Eye irritation [None]
  - Hyperhidrosis [None]
  - Fatigue [None]
  - Dysgeusia [None]
  - Constipation [None]

NARRATIVE: CASE EVENT DATE: 20141213
